FAERS Safety Report 8849235 (Version 1)
Quarter: 2012Q4

REPORT INFORMATION
  Report Type: 
  Country: TR (occurrence: TR)
  Receive Date: 20121019
  Receipt Date: 20121019
  Transmission Date: 20130627
  Serious: Yes (Other)
  Sender: FDA-Public Use
  Company Number: TR-US-EMD SERONO, INC.-7167749

PATIENT
  Age: 26 Year
  Sex: Female

DRUGS (2)
  1. OVITRELLE [Suspect]
     Indication: INFERTILITY
  2. FOLLITROPIN ALFA [Suspect]
     Indication: OVULATION INDUCTION

REACTIONS (8)
  - Multiple pregnancy [Recovered/Resolved]
  - Premature delivery [Unknown]
  - Ovarian hyperstimulation syndrome [Recovered/Resolved]
  - Dyspnoea [None]
  - Blood sodium decreased [None]
  - Haematocrit increased [None]
  - Oliguria [None]
  - Caesarean section [None]
